FAERS Safety Report 9012140 (Version 2)
Quarter: 2013Q1

REPORT INFORMATION
  Report Type: Spontaneous
  Country: US (occurrence: US)
  Receive Date: 20130114
  Receipt Date: 20130206
  Transmission Date: 20140127
  Serious: No
  Sender: FDA-Public Use
  Company Number: US-PFIZER INC-2013011567

PATIENT
  Age: 76 Year
  Sex: Female
  Weight: 60.32 kg

DRUGS (9)
  1. LYRICA [Suspect]
     Indication: SCIATICA
     Dosage: 50 MG, 2X/DAY
     Route: 048
     Dates: start: 20121217
  2. LOVASTATIN [Concomitant]
     Dosage: UNK
  3. NORTRIPTYLINE [Concomitant]
     Dosage: UNK
  4. PENTOXIFYLLINE [Concomitant]
     Indication: MICROANGIOPATHY
     Dosage: UNK
  5. ALENDRONATE [Concomitant]
     Indication: OSTEOPOROSIS
     Dosage: UNK
  6. OMEPRAZOLE [Concomitant]
     Indication: OESOPHAGITIS
     Dosage: UNK
  7. ALBUTEROL [Concomitant]
     Dosage: UNK
  8. SINGULAIR [Concomitant]
     Indication: ASTHMA
     Dosage: UNK
  9. MELOXICAM [Concomitant]
     Indication: ARTHRITIS
     Dosage: UNK

REACTIONS (2)
  - Arthropod bite [Recovering/Resolving]
  - Blister [Recovering/Resolving]
